FAERS Safety Report 16823665 (Version 8)
Quarter: 2020Q2

REPORT INFORMATION
  Report Type: Report from Study
  Country: US (occurrence: US)
  Receive Date: 20190918
  Receipt Date: 20200521
  Transmission Date: 20200713
  Serious: Yes (Other)
  Sender: FDA-Public Use
  Company Number: US-SA-2019SA256199

PATIENT
  Age: 69 Year
  Sex: Female

DRUGS (36)
  1. DUPILUMAB [Suspect]
     Active Substance: DUPILUMAB
     Dosage: 2 DF
  2. MULTAQ [Concomitant]
     Active Substance: DRONEDARONE
  3. CRESTOR [Concomitant]
     Active Substance: ROSUVASTATIN CALCIUM
  4. LASIX [Concomitant]
     Active Substance: FUROSEMIDE
  5. POTASSIUM [Concomitant]
     Active Substance: POTASSIUM
  6. SPIRIN [Concomitant]
  7. CALCIUM [Concomitant]
     Active Substance: CALCIUM
  8. GARCINIA CAMBOGIA [GARCINIA GUMMI-GUTTA FRUIT] [Concomitant]
  9. DYMISTA [Concomitant]
     Active Substance: AZELASTINE HYDROCHLORIDE\FLUTICASONE PROPIONATE
  10. FLUTICASONE. [Concomitant]
     Active Substance: FLUTICASONE
  11. SYNTHROID [Concomitant]
     Active Substance: LEVOTHYROXINE SODIUM
  12. MULTIVITAMINS [VITAMINS NOS] [Concomitant]
     Active Substance: VITAMINS
  13. PROAIR [FLUTICASONE PROPIONATE] [Concomitant]
     Active Substance: FLUTICASONE PROPIONATE
  14. DUPILUMAB [Suspect]
     Active Substance: DUPILUMAB
     Indication: ASTHMA
     Dosage: 300 MG, QOW
     Route: 058
     Dates: start: 20190801
  15. DUPILUMAB [Suspect]
     Active Substance: DUPILUMAB
     Dosage: 300 MG, QOW
     Route: 058
  16. GABAPENTIN. [Concomitant]
     Active Substance: GABAPENTIN
  17. RANEXA [Concomitant]
     Active Substance: RANOLAZINE
  18. PLAVIX [Concomitant]
     Active Substance: CLOPIDOGREL BISULFATE
  19. XOLAIR [Concomitant]
     Active Substance: OMALIZUMAB
  20. DUPILUMAB [Suspect]
     Active Substance: DUPILUMAB
     Dosage: 600 MG, 1X
     Route: 058
     Dates: start: 20190820, end: 20190820
  21. SPIRONOLACTONE. [Concomitant]
     Active Substance: SPIRONOLACTONE
  22. OPSUMIT [Concomitant]
     Active Substance: MACITENTAN
  23. LETROZOLE. [Concomitant]
     Active Substance: LETROZOLE
  24. ORENITRAM [Suspect]
     Active Substance: TREPROSTINIL
     Dosage: BEYOND 3.5 MG THREE TIMES DAILY
  25. ORENITRAM [Suspect]
     Active Substance: TREPROSTINIL
     Dosage: 3.5 MG, TID
  26. COZAAR [Concomitant]
     Active Substance: LOSARTAN POTASSIUM
  27. ASPIRIN (E.C.) [Concomitant]
     Active Substance: ASPIRIN
  28. COENZYME Q10 [Concomitant]
     Active Substance: UBIDECARENONE
  29. SYMBICORT [Concomitant]
     Active Substance: BUDESONIDE\FORMOTEROL FUMARATE DIHYDRATE
  30. COLLAGEN [Concomitant]
     Active Substance: COLLAGEN
  31. OMEGA 3 [FISH OIL] [Concomitant]
     Active Substance: FISH OIL
  32. ELIQUIS [Suspect]
     Active Substance: APIXABAN
     Dosage: UNK, UNK
  33. ADEMPAS [Concomitant]
     Active Substance: RIOCIGUAT
  34. CARDIZEM [Concomitant]
     Active Substance: DILTIAZEM HYDROCHLORIDE
  35. RANITIDINE. [Concomitant]
     Active Substance: RANITIDINE
  36. GLUCOSAMINE [Concomitant]
     Active Substance: GLUCOSAMINE

REACTIONS (14)
  - Haemorrhage [Unknown]
  - Asthma [Unknown]
  - Nasal congestion [Unknown]
  - Chest discomfort [Unknown]
  - Gastrooesophageal reflux disease [Unknown]
  - Rhinitis [Unknown]
  - Drug ineffective [Unknown]
  - Pulmonary arterial hypertension [Unknown]
  - Unevaluable event [Unknown]
  - Extra dose administered [Unknown]
  - Dyspnoea [Unknown]
  - Incorrect dosage administered [Unknown]
  - Fatigue [Unknown]
  - Peripheral swelling [Unknown]

NARRATIVE: CASE EVENT DATE: 20190820
